FAERS Safety Report 4912408-6 (Version None)
Quarter: 2006Q1

REPORT INFORMATION
  Report Type: 
  Country: None (occurrence: None)
  Receive Date: 20060215
  Receipt Date: 20050214
  Transmission Date: 20060701
  Serious: No
  Sender: FDA-Public Use
  Company Number: US-GLAXOSMITHKLINE-A0547809A

PATIENT
  Age: 38 Year
  Sex: Female
  Weight: 88.2 kg

DRUGS (1)
  1. VALTREX [Suspect]
     Dosage: 500MG TWICE PER DAY
     Route: 048
     Dates: start: 20050201, end: 20050204

REACTIONS (2)
  - DRUG HYPERSENSITIVITY [None]
  - RASH ERYTHEMATOUS [None]
